FAERS Safety Report 7302331-4 (Version None)
Quarter: 2011Q1

REPORT INFORMATION
  Report Type: 
  Country: None (occurrence: None)
  Receive Date: 20110218
  Receipt Date: 20110215
  Transmission Date: 20110831
  Serious: Yes (Hospitalization)
  Sender: FDA-Public Use
  Company Number: US-EISAI INC-E2080-00381-SPO-US

PATIENT
  Age: 21 Year
  Sex: Female

DRUGS (2)
  1. BANZEL [Suspect]
     Route: 048
     Dates: start: 20110201, end: 20110214
  2. BANZEL [Suspect]
     Route: 048
     Dates: start: 20110124, end: 20110201

REACTIONS (2)
  - DYSKINESIA [None]
  - EYE MOVEMENT DISORDER [None]
